FAERS Safety Report 9262587 (Version 1)
Quarter: 2013Q2

REPORT INFORMATION
  Report Type: Spontaneous
  Country: US (occurrence: None)
  Receive Date: 20130426
  Receipt Date: 20130426
  Transmission Date: 20140414
  Serious: Yes (Hospitalization)
  Sender: FDA-Public Use
  Company Number: None

PATIENT
  Age: 56 Year
  Sex: Male
  Weight: 87.54 kg

DRUGS (2)
  1. GEMCITABINE [Suspect]
  2. CISPLATIN [Suspect]

REACTIONS (6)
  - Pyrexia [None]
  - Pyelonephritis [None]
  - Urinary tract infection [None]
  - Escherichia bacteraemia [None]
  - Renal failure acute [None]
  - Lactic acidosis [None]
